FAERS Safety Report 4687077-3 (Version None)
Quarter: 2005Q2

REPORT INFORMATION
  Report Type: 
  Country: None (occurrence: None)
  Receive Date: 20050608
  Receipt Date: 20050524
  Transmission Date: 20051028
  Serious: Yes (Other)
  Sender: FDA-Public Use
  Company Number: 2005080140

PATIENT
  Sex: Female

DRUGS (1)
  1. CELEBREX [Suspect]
     Indication: ILL-DEFINED DISORDER

REACTIONS (5)
  - DRUG INEFFECTIVE [None]
  - FIBROMYALGIA [None]
  - OSTEOPOROSIS [None]
  - SYSTEMIC LUPUS ERYTHEMATOSUS [None]
  - VOMITING [None]
